FAERS Safety Report 7037202-4 (Version None)
Quarter: 2010Q4

REPORT INFORMATION
  Report Type: 
  Country: None (occurrence: None)
  Receive Date: 20101011
  Receipt Date: 20100928
  Transmission Date: 20110411
  Serious: Yes (Other)
  Sender: FDA-Public Use
  Company Number: ES-ELI_LILLY_AND_COMPANY-ES201009007568

PATIENT
  Sex: Female
  Weight: 67 kg

DRUGS (8)
  1. FORTEO [Suspect]
     Indication: OSTEOPOROSIS
     Dosage: 20 UG, DAILY (1/D)
     Route: 058
     Dates: start: 20090925
  2. CEPRANDAL [Concomitant]
     Indication: PROPHYLAXIS
     Dosage: UNK, DAILY (1/D)
     Route: 048
  3. SIMVASTATINA [Concomitant]
     Indication: HYPERCHOLESTEROLAEMIA
     Dosage: 10 MG, DAILY (1/D)
     Route: 048
  4. ENALAPRIL MALEATE [Concomitant]
     Indication: HYPERTENSION
     Dosage: 20 MG, DAILY (1/D)
     Route: 048
  5. CELEBREX [Concomitant]
     Indication: ANTIINFLAMMATORY THERAPY
     Dosage: 200 MG, DAILY (1/D)
     Route: 048
  6. GELOCATIL [Concomitant]
     Indication: ANALGESIC THERAPY
     Dosage: 1 G, EVERY 8 HRS
     Route: 048
  7. LORAZEPAM [Concomitant]
     Indication: DEPRESSION
     Dosage: 1 MG, 1/2 / 1/2 -1
     Route: 048
  8. BESITRAN [Concomitant]
     Indication: DEPRESSION
     Dosage: 50 MG, DAILY (1/D)
     Route: 048

REACTIONS (3)
  - HIP FRACTURE [None]
  - MALAISE [None]
  - SCIATICA [None]
